FAERS Safety Report 13644536 (Version 3)
Quarter: 2017Q3

REPORT INFORMATION
  Report Type: Spontaneous
  Country: US (occurrence: US)
  Receive Date: 20170612
  Receipt Date: 20170817
  Transmission Date: 20171127
  Serious: No
  Sender: FDA-Public Use
  Company Number: US-009507513-1706USA001079

PATIENT
  Sex: Female
  Weight: 123.36 kg

DRUGS (1)
  1. NEXPLANON [Suspect]
     Active Substance: ETONOGESTREL
     Indication: CONTRACEPTION
     Dosage: 68 MG (1 ROD), UNK
     Route: 059
     Dates: start: 20160217

REACTIONS (1)
  - Upper limb fracture [Not Recovered/Not Resolved]
